FAERS Safety Report 20859655 (Version 2)
Quarter: 2022Q2

REPORT INFORMATION
  Report Type: Spontaneous
  Country: US (occurrence: US)
  Receive Date: 20220523
  Receipt Date: 20220526
  Transmission Date: 20220720
  Serious: No
  Sender: FDA-Public Use
  Company Number: US-BRISTOL-MYERS SQUIBB COMPANY-2022-032266

PATIENT
  Age: 66 Year
  Sex: Male
  Weight: 98.43 kg

DRUGS (1)
  1. POMALYST [Suspect]
     Active Substance: POMALIDOMIDE
     Indication: Plasma cell myeloma
     Dosage: DOSE: 2 MILLIGRAM, FREQ: DAILY ON DAYS 1-21, EVERY 28 DAYS^
     Route: 048
     Dates: start: 20220420

REACTIONS (7)
  - Oedema [Unknown]
  - Fatigue [Unknown]
  - Product dose omission issue [Unknown]
  - Oedema peripheral [Not Recovered/Not Resolved]
  - Somnolence [Not Recovered/Not Resolved]
  - Malaise [Not Recovered/Not Resolved]
  - Amnesia [Recovered/Resolved]
